FAERS Safety Report 5369410-2 (Version None)
Quarter: 2007Q2

REPORT INFORMATION
  Report Type: 
  Country: None (occurrence: None)
  Receive Date: 20070625
  Receipt Date: 20070412
  Transmission Date: 20071010
  Serious: No
  Sender: FDA-Public Use
  Company Number: US-ASTRAZENECA-2007UW07270

PATIENT
  Age: 57 Year
  Sex: Male
  Weight: 75 kg

DRUGS (6)
  1. CRESTOR [Suspect]
     Indication: BLOOD CHOLESTEROL
     Route: 048
     Dates: start: 20060101
  2. NOVO-ATENOL [Concomitant]
     Indication: CARDIAC DISORDER
     Route: 048
     Dates: start: 20060301
  3. NOVASEN [Concomitant]
     Indication: ANTICOAGULANT THERAPY
     Route: 048
     Dates: start: 20051001
  4. HYDROCHLOROTHIAZIDE [Concomitant]
     Indication: DIURETIC THERAPY
     Dosage: 1/2 25 MG DAY
     Route: 048
     Dates: start: 20060101
  5. NORVASC [Concomitant]
     Indication: CARDIAC DISORDER
     Route: 048
     Dates: start: 20060115
  6. APO-RAMIPRIL [Concomitant]
     Indication: HYPERTENSION
     Route: 048
     Dates: start: 20050103

REACTIONS (3)
  - FALL [None]
  - MYALGIA [None]
  - OEDEMA PERIPHERAL [None]
